FAERS Safety Report 8733176 (Version 2)
Quarter: 2012Q4

REPORT INFORMATION
  Report Type: 
  Country: US (occurrence: US)
  Receive Date: 20120821
  Receipt Date: 20120924
  Transmission Date: 20130627
  Serious: Yes (Other)
  Sender: FDA-Public Use
  Company Number: US-AMGEN-USASP2012052030

PATIENT
  Age: 80 Year
  Sex: Female
  Weight: 54.42 kg

DRUGS (9)
  1. PROLIA [Suspect]
     Indication: OSTEOPOROSIS POSTMENOPAUSAL
     Dosage: 60 mg, one time dose
     Route: 058
     Dates: start: 20111122, end: 20111122
  2. MORPHINE [Concomitant]
     Indication: BACK PAIN
     Dosage: 3 mg, tid
     Route: 048
  3. COUMADIN /00014802/ [Concomitant]
     Indication: DEEP VEIN THROMBOSIS
     Dosage: 5 mg, UNK
     Route: 048
  4. MOBIC [Concomitant]
     Indication: OSTEOARTHRITIS
     Dosage: 15 mg, UNK
  5. NEXIUM                             /01479302/ [Concomitant]
     Indication: GASTROOESOPHAGEAL REFLUX DISEASE
     Dosage: 40 mg, UNK
     Route: 048
  6. TYLENOL ARTHRITIS [Concomitant]
     Indication: OSTEOARTHRITIS
     Dosage: 2 UNK, UNK
     Route: 048
  7. VITAMIN D /00107901/ [Concomitant]
  8. CALCIUM [Concomitant]
  9. GLYCOLAX [Concomitant]

REACTIONS (3)
  - Wound complication [Not Recovered/Not Resolved]
  - Skin ulcer [Not Recovered/Not Resolved]
  - Impaired healing [Not Recovered/Not Resolved]
